FAERS Safety Report 8566863 (Version 4)
Quarter: 2013Q1

REPORT INFORMATION
  Report Type: Spontaneous
  Country: US (occurrence: US)
  Receive Date: 20120517
  Receipt Date: 20130312
  Transmission Date: 20140127
  Serious: Yes (Other)
  Sender: FDA-Public Use
  Company Number: US-ACTELION-A-NJ2012-65418

PATIENT
  Age: 82 Year
  Sex: Male

DRUGS (4)
  1. TRACLEER [Suspect]
     Indication: PULMONARY ARTERIAL HYPERTENSION
     Dosage: 125 MG, BID
     Route: 048
     Dates: start: 20120413
  2. TRACLEER [Suspect]
     Dosage: 62.5 MG, BID
     Route: 048
     Dates: start: 20120317, end: 20120412
  3. ADCIRCA [Concomitant]
  4. TYVASO [Concomitant]

REACTIONS (4)
  - Red blood cell morphology abnormal [Not Recovered/Not Resolved]
  - Anaemia [Not Recovered/Not Resolved]
  - Haemoglobin decreased [Not Recovered/Not Resolved]
  - Haematocrit decreased [Not Recovered/Not Resolved]
